FAERS Safety Report 7278105-X (Version None)
Quarter: 2010Q4

REPORT INFORMATION
  Report Type: 
  Country: None (occurrence: None)
  Receive Date: 20101206
  Receipt Date: 20101025
  Transmission Date: 20110411
  Serious: No
  Sender: FDA-Public Use
  Company Number: 2010SP056968

PATIENT
  Age: 27 Year
  Sex: Male

DRUGS (1)
  1. SAPHRIS [Suspect]
     Indication: BIPOLAR DISORDER
     Dosage: QPM

REACTIONS (3)
  - EYE PAIN [None]
  - INAPPROPRIATE SCHEDULE OF DRUG ADMINISTRATION [None]
  - INSOMNIA [None]
